FAERS Safety Report 4529308-6 (Version None)
Quarter: 2004Q4

REPORT INFORMATION
  Report Type: 
  Country: None (occurrence: None)
  Receive Date: 20041214
  Receipt Date: 20041201
  Transmission Date: 20050328
  Serious: Yes (Hospitalization)
  Sender: FDA-Public Use
  Company Number: 2004095874

PATIENT
  Age: 29 Year
  Sex: Female
  Weight: 50 kg

DRUGS (7)
  1. ZITHROMAX [Suspect]
     Indication: ILL-DEFINED DISORDER
     Dosage: 500 MG, (1 D), ORAL
     Route: 048
     Dates: start: 20041101, end: 20041103
  2. CARBOCISTEINE (CARBOCISTEINE) [Suspect]
     Indication: PHARYNGITIS
     Dosage: 1500 MG (500 MG, 3 IN 1 D), ORAL
     Route: 048
     Dates: start: 20041101, end: 20041103
  3. NITRAZEPAM [Concomitant]
  4. TULOBUTEROL HYDROCHLORIDE (TULOBUTEROL HYDROCHLORIDE) [Concomitant]
  5. BROTIZOLAM (BROTIZOLAM) [Concomitant]
  6. CHLORPROMAZINE [Concomitant]
  7. ZOLPIDEM TARTRATE [Concomitant]

REACTIONS (6)
  - CONDITION AGGRAVATED [None]
  - DRUG HYPERSENSITIVITY [None]
  - MOUTH ULCERATION [None]
  - MUCOSAL EROSION [None]
  - MUCOUS MEMBRANE DISORDER [None]
  - SKIN DESQUAMATION [None]
